FAERS Safety Report 5500762-6 (Version None)
Quarter: 2007Q4

REPORT INFORMATION
  Report Type: 
  Country: None (occurrence: None)
  Receive Date: 20071029
  Receipt Date: 20071015
  Transmission Date: 20080405
  Serious: Yes (Hospitalization)
  Sender: FDA-Public Use
  Company Number: US-ROCHE-508258

PATIENT
  Age: 46 Year
  Sex: Male
  Weight: 88.7 kg

DRUGS (13)
  1. PEG-INTERFERON ALFA 2A (RO 25-8310) [Suspect]
     Dosage: ADMINISTERED WEEKLY.
     Route: 058
     Dates: start: 20061110
  2. RIBAVIRIN [Suspect]
     Route: 048
     Dates: start: 20061110, end: 20070717
  3. LEXAPRO [Concomitant]
     Dates: start: 20070108
  4. BUSPAR [Concomitant]
     Dates: start: 20070603
  5. TRAZODONE HCL [Concomitant]
     Dates: start: 20070223, end: 20070804
  6. SOY PROTEIN [Concomitant]
     Dates: start: 20061118
  7. ADVIL [Concomitant]
     Dates: start: 20061114
  8. VITAMIN E [Concomitant]
     Dates: start: 20040101
  9. ASCORBIC ACID [Concomitant]
     Dates: start: 20020101
  10. AMINO ACID INJ [Concomitant]
     Dates: start: 20040101
  11. MULTIVITAMIN NOS [Concomitant]
     Dates: start: 19710101
  12. VITAMIN B-12 [Concomitant]
     Dates: start: 20020101
  13. ASPIRIN [Concomitant]
     Dates: start: 20060301

REACTIONS (1)
  - BILIARY DYSKINESIA [None]
